FAERS Safety Report 8773778 (Version 1)
Quarter: 2012Q4

REPORT INFORMATION
  Report Type: 
  Country: US (occurrence: US)
  Receive Date: 20120907
  Receipt Date: 20120907
  Transmission Date: 20130627
  Serious: No
  Sender: FDA-Public Use
  Company Number: US-PFIZER INC-2012219298

PATIENT
  Age: 62 Year
  Sex: Female
  Weight: 63.49 kg

DRUGS (14)
  1. CHANTIX [Suspect]
     Indication: SMOKING CESSATION THERAPY
     Dosage: 0.5 mg, 1x/day
     Dates: start: 200912
  2. CHANTIX [Suspect]
     Dosage: UNK
  3. ADVAIR [Concomitant]
     Indication: ASTHMA
     Dosage: UNK
  4. SINGULAIR [Concomitant]
     Indication: ASTHMA
     Dosage: UNK
  5. SPIRIVA [Concomitant]
     Indication: ASTHMA
     Dosage: UNK
  6. MICARDIS [Concomitant]
     Indication: HYPERTENSION
     Dosage: UNK
  7. SIMVASTATIN [Concomitant]
     Indication: BLOOD CHOLESTEROL INCREASED
     Dosage: UNK
  8. ZANTAC [Concomitant]
     Indication: GASTROOESOPHAGEAL REFLUX DISEASE
     Dosage: 150 mg, UNK
  9. ADVIL [Concomitant]
     Dosage: UNK
  10. INDAPAMIDE [Concomitant]
     Dosage: UNK
  11. ASPIRIN [Concomitant]
     Dosage: 81 mg, 1x/day
  12. WAL-ZYR D [Concomitant]
     Dosage: UNK
  13. OMEPRAZOLE [Concomitant]
     Dosage: UNK
  14. CITALOPRAM [Concomitant]
     Dosage: UNK

REACTIONS (2)
  - Abnormal dreams [Recovered/Resolved]
  - Stress [Unknown]
